FAERS Safety Report 19004504 (Version 3)
Quarter: 2021Q2

REPORT INFORMATION
  Report Type: Report from Study
  Country: US (occurrence: US)
  Receive Date: 20210312
  Receipt Date: 20210401
  Transmission Date: 20210717
  Serious: Yes (Other)
  Sender: FDA-Public Use
  Company Number: US-TAKEDA-2021TUS015736

PATIENT
  Age: 33 Year
  Sex: Female

DRUGS (3)
  1. 555 (PRUCALOPRIDE) [Suspect]
     Active Substance: PRUCALOPRIDE
     Dosage: 1 MILLIGRAM, QD
     Route: 065
  2. 555 (PRUCALOPRIDE) [Suspect]
     Active Substance: PRUCALOPRIDE
     Dosage: 2 UNK
     Route: 065
  3. 555 (PRUCALOPRIDE) [Suspect]
     Active Substance: PRUCALOPRIDE
     Indication: CONSTIPATION
     Dosage: 4 MILLIGRAM, QD
     Route: 065

REACTIONS (18)
  - Feeling of body temperature change [Unknown]
  - Pain [Unknown]
  - Gastrointestinal bacterial overgrowth [Unknown]
  - Headache [Not Recovered/Not Resolved]
  - Hot flush [Unknown]
  - Muscle spasms [Not Recovered/Not Resolved]
  - Hypophagia [Unknown]
  - Diarrhoea [Not Recovered/Not Resolved]
  - Intentional dose omission [Unknown]
  - Impaired gastric emptying [Unknown]
  - Haemorrhoids [Unknown]
  - Dehydration [Not Recovered/Not Resolved]
  - Nausea [Unknown]
  - Feeling abnormal [Unknown]
  - Chills [Unknown]
  - Malaise [Not Recovered/Not Resolved]
  - Drug withdrawal headache [Unknown]
  - Incorrect dose administered [Unknown]
